FAERS Safety Report 8924424 (Version 1)
Quarter: 2012Q4

REPORT INFORMATION
  Report Type: Spontaneous
  Country: US (occurrence: None)
  Receive Date: 20121121
  Receipt Date: 20121121
  Transmission Date: 20130627
  Serious: Yes (Other)
  Sender: FDA-Public Use
  Company Number: None

PATIENT
  Sex: Female
  Weight: 65 kg

DRUGS (3)
  1. TRETINOIN [Suspect]
     Indication: HEAVY SUN EXPOSURE
     Dosage: Tretinoin OD topical
     Route: 061
     Dates: start: 201109, end: 201210
  2. THYROXIN [Concomitant]
  3. NEXIUM [Concomitant]

REACTIONS (1)
  - Urticaria [None]
